FAERS Safety Report 7769367-0 (Version None)
Quarter: 2011Q3

REPORT INFORMATION
  Report Type: 
  Country: None (occurrence: None)
  Receive Date: 20110922
  Receipt Date: 20110601
  Transmission Date: 20111222
  Serious: No
  Sender: FDA-Public Use
  Company Number: US-ASTRAZENECA-2011SE30803

PATIENT
  Age: 41 Year
  Sex: Male
  Weight: 70.3 kg

DRUGS (10)
  1. SEROQUEL [Suspect]
     Route: 048
     Dates: start: 20110101
  2. DEPAKOTE [Concomitant]
  3. SEROQUEL [Suspect]
     Indication: BIPOLAR DISORDER
     Route: 048
     Dates: start: 20060101
  4. SEROQUEL [Suspect]
     Route: 048
     Dates: start: 20100101, end: 20110101
  5. VISTARIL [Concomitant]
  6. SEROQUEL [Suspect]
     Route: 048
     Dates: end: 20100101
  7. SEROQUEL [Suspect]
     Route: 048
     Dates: start: 20100101, end: 20110101
  8. SEROQUEL [Suspect]
     Indication: DEPRESSION
     Route: 048
     Dates: start: 20060101
  9. SEROQUEL [Suspect]
     Route: 048
     Dates: end: 20100101
  10. SEROQUEL [Suspect]
     Route: 048
     Dates: start: 20110101

REACTIONS (8)
  - FEELING ABNORMAL [None]
  - ANGER [None]
  - TREMOR [None]
  - INSOMNIA [None]
  - ANXIETY [None]
  - DIARRHOEA [None]
  - MALAISE [None]
  - DRUG DOSE OMISSION [None]
